FAERS Safety Report 8361190-1 (Version None)
Quarter: 2012Q2

REPORT INFORMATION
  Report Type: 
  Country: None (occurrence: None)
  Receive Date: 20120515
  Receipt Date: 20110713
  Transmission Date: 20120825
  Serious: No
  Sender: FDA-Public Use
  Company Number: US-ALEXION-A201101060

PATIENT
  Sex: Female
  Weight: 85 kg

DRUGS (5)
  1. UNSPECIFIED MEDICATION [Concomitant]
     Indication: PROPHYLAXIS
     Dosage: UNK
  2. SOLIRIS [Suspect]
     Dosage: 900 MG, Q2W
     Route: 042
     Dates: start: 20101123
  3. LUTERA-28 [Concomitant]
     Indication: PROPHYLAXIS
     Dosage: UNK
  4. SOLIRIS [Suspect]
     Indication: PAROXYSMAL NOCTURNAL HAEMOGLOBINURIA
     Dosage: 600 MG, QW
     Route: 042
     Dates: start: 20101026, end: 20100101
  5. CYCLOSPORINE [Concomitant]
     Dosage: UNK

REACTIONS (4)
  - WHEEZING [None]
  - PLATELET TRANSFUSION [None]
  - CHEST DISCOMFORT [None]
  - URTICARIA [None]
